FAERS Safety Report 24129835 (Version 1)
Quarter: 2024Q3

REPORT INFORMATION
  Report Type: Spontaneous
  Country: CH (occurrence: CH)
  Receive Date: 20240724
  Receipt Date: 20240724
  Transmission Date: 20241017
  Serious: Yes (Other)
  Sender: ABBVIE
  Company Number: CH-ABBVIE-5844285

PATIENT
  Age: 54 Year
  Sex: Male

DRUGS (2)
  1. SEVOFLURANE [Suspect]
     Active Substance: SEVOFLURANE
     Indication: Induction and maintenance of anaesthesia
     Route: 055
  2. REMIFENTANIL [Suspect]
     Active Substance: REMIFENTANIL
     Indication: Induction and maintenance of anaesthesia
     Route: 065

REACTIONS (2)
  - Cardiogenic shock [Unknown]
  - Hypoxia [Unknown]
